FAERS Safety Report 14851316 (Version 1)
Quarter: 2018Q2

REPORT INFORMATION
  Report Type: Spontaneous
  Country: AU (occurrence: AU)
  Receive Date: 20180507
  Receipt Date: 20180507
  Transmission Date: 20180711
  Serious: Yes (Other)
  Sender: FDA-Public Use
  Company Number: AU-ROCHE-2112952

PATIENT
  Sex: Female
  Weight: 69 kg

DRUGS (7)
  1. HERCEPTIN [Suspect]
     Active Substance: TRASTUZUMAB
     Indication: HER-2 POSITIVE BREAST CANCER
     Route: 058
     Dates: start: 20180103
  2. PREDNISONE. [Concomitant]
     Active Substance: PREDNISONE
  3. NEXIUM [Concomitant]
     Active Substance: ESOMEPRAZOLE MAGNESIUM
  4. AROPAX [Concomitant]
     Active Substance: PAROXETINE HYDROCHLORIDE
     Indication: ANXIETY
     Dosage: APPROX 20 YEARS AGO, 20 MG
     Route: 048
  5. MAGMIN [Concomitant]
     Active Substance: MAGNESIUM ASPARTATE
     Indication: BLOOD MAGNESIUM DECREASED
     Route: 048
     Dates: start: 201712
  6. MEGAFOL [Concomitant]
     Active Substance: FOLIC ACID
     Route: 048
     Dates: start: 201712
  7. HERCEPTIN [Suspect]
     Active Substance: TRASTUZUMAB
     Indication: HER-2 POSITIVE BREAST CANCER
     Route: 042
     Dates: start: 20170918

REACTIONS (3)
  - Photosensitivity reaction [Unknown]
  - Urticaria [Unknown]
  - Thrombosis in device [Unknown]
